FAERS Safety Report 8085958-4 (Version None)
Quarter: 2012Q1

REPORT INFORMATION
  Report Type: 
  Country: None (occurrence: None)
  Receive Date: 20120128
  Receipt Date: 20110504
  Transmission Date: 20120608
  Serious: No
  Sender: FDA-Public Use
  Company Number: US-ABBOTT-11P-163-0723718-00

PATIENT
  Sex: Female
  Weight: 77.18 kg

DRUGS (10)
  1. IMITREX [Concomitant]
     Indication: MIGRAINE
  2. MULTI-VITAMINS [Concomitant]
     Indication: VITAMIN SUPPLEMENTATION
  3. VITAMIN B-12 [Concomitant]
     Indication: VITAMIN SUPPLEMENTATION
  4. METHOTREXATE [Concomitant]
     Indication: RHEUMATOID ARTHRITIS
  5. VITAMIN B6 [Concomitant]
     Indication: VITAMIN SUPPLEMENTATION
  6. HUMIRA [Suspect]
     Indication: RHEUMATOID ARTHRITIS
     Dates: start: 20110331
  7. FOLIC ACID [Concomitant]
     Indication: VITAMIN SUPPLEMENTATION
  8. PROZAC [Concomitant]
     Indication: DEPRESSION
  9. COD OIL [Concomitant]
     Indication: SUPPLEMENTATION THERAPY
  10. VITAMIN D [Concomitant]
     Indication: VITAMIN SUPPLEMENTATION

REACTIONS (3)
  - NASOPHARYNGITIS [None]
  - COUGH [None]
  - ARTHRALGIA [None]
